FAERS Safety Report 9463969 (Version 1)
Quarter: 2013Q3

REPORT INFORMATION
  Report Type: Spontaneous
  Country: US (occurrence: US)
  Receive Date: 20130819
  Receipt Date: 20130819
  Transmission Date: 20140515
  Serious: No
  Sender: FDA-Public Use
  Company Number: US-BRISTOL-MYERS SQUIBB COMPANY-16896623

PATIENT
  Sex: Male

DRUGS (2)
  1. REYATAZ [Suspect]
  2. BACTRIM [Suspect]
     Indication: CYSTITIS

REACTIONS (2)
  - Nausea [Unknown]
  - Vomiting [Unknown]
